FAERS Safety Report 4872971-0 (Version None)
Quarter: 2006Q1

REPORT INFORMATION
  Report Type: 
  Country: None (occurrence: None)
  Receive Date: 20060105
  Receipt Date: 20050613
  Transmission Date: 20060701
  Serious: Yes (Other)
  Sender: FDA-Public Use
  Company Number: US-BRISTOL-MYERS SQUIBB COMPANY-13006002

PATIENT
  Age: 55 Year
  Sex: Male

DRUGS (1)
  1. SERZONE [Suspect]
     Indication: PANIC ATTACK
     Dates: start: 20010926, end: 20011201

REACTIONS (2)
  - HEPATIC CIRRHOSIS [None]
  - JAUNDICE [None]
